FAERS Safety Report 24611577 (Version 2)
Quarter: 2024Q4

REPORT INFORMATION
  Report Type: Spontaneous
  Country: JP (occurrence: JP)
  Receive Date: 20241113
  Receipt Date: 20241230
  Transmission Date: 20250114
  Serious: Yes (Death, Hospitalization)
  Sender: JOHNSON AND JOHNSON
  Company Number: JP-JNJFOC-20241128299

PATIENT
  Age: 8 Decade
  Sex: Female

DRUGS (2)
  1. UPTRAVI [Suspect]
     Active Substance: SELEXIPAG
     Indication: Pulmonary arterial hypertension
     Dosage: UNKNOWN
     Route: 048
     Dates: start: 20211110, end: 202411
  2. UPTRAVI [Suspect]
     Active Substance: SELEXIPAG
     Dosage: UNKNOWN, DECREASED
     Route: 048
     Dates: start: 202411, end: 20241218

REACTIONS (2)
  - Pneumonia [Fatal]
  - Infection [Unknown]

NARRATIVE: CASE EVENT DATE: 20241101
